FAERS Safety Report 15397409 (Version 3)
Quarter: 2020Q1

REPORT INFORMATION
  Report Type: Spontaneous
  Country: US (occurrence: US)
  Receive Date: 20180918
  Receipt Date: 20200317
  Transmission Date: 20200409
  Serious: Yes (Hospitalization)
  Sender: FDA-Public Use
  Company Number: US-JNJFOC-20180916491

PATIENT
  Age: 34 Year
  Sex: Female

DRUGS (4)
  1. XARELTO [Suspect]
     Active Substance: RIVAROXABAN
     Indication: DEEP VEIN THROMBOSIS
     Dosage: VARYING DOSES 15-20 MG.
     Route: 048
     Dates: start: 20170517, end: 2017
  2. XARELTO [Suspect]
     Active Substance: RIVAROXABAN
     Route: 048
     Dates: start: 20170617, end: 20170729
  3. XARELTO [Suspect]
     Active Substance: RIVAROXABAN
     Dosage: VARYING DOSES 15-20 MG.
     Route: 048
     Dates: start: 2017, end: 20170829
  4. DEPO-PROVERA [Suspect]
     Active Substance: MEDROXYPROGESTERONE ACETATE
     Indication: PRODUCT USED FOR UNKNOWN INDICATION
     Route: 065
     Dates: start: 201705, end: 2017

REACTIONS (2)
  - Withdrawal bleed [Recovering/Resolving]
  - Multiple injuries [Recovered/Resolved]

NARRATIVE: CASE EVENT DATE: 201705
